FAERS Safety Report 25629698 (Version 1)
Quarter: 2025Q3

REPORT INFORMATION
  Report Type: Spontaneous
  Country: CN (occurrence: CN)
  Receive Date: 20250731
  Receipt Date: 20250731
  Transmission Date: 20251020
  Serious: Yes (Death)
  Sender: NOVARTIS
  Company Number: CN-002147023-NVSC2025CN120979

PATIENT
  Age: 49 Year
  Sex: Female

DRUGS (1)
  1. LETROZOLE [Suspect]
     Active Substance: LETROZOLE
     Indication: Uterine cancer
     Dosage: 2.5 MG, QD
     Route: 048

REACTIONS (4)
  - Uterine cancer [Fatal]
  - Malignant neoplasm progression [Fatal]
  - Metastasis [Fatal]
  - Drug ineffective for unapproved indication [Fatal]
